FAERS Safety Report 5377728-2 (Version None)
Quarter: 2007Q2

REPORT INFORMATION
  Report Type: 
  Country: None (occurrence: None)
  Receive Date: 20070530
  Receipt Date: 20070305
  Transmission Date: 20071010
  Serious: No
  Sender: FDA-Public Use
  Company Number: 2007PV031116

PATIENT
  Age: 45 Year
  Sex: Male

DRUGS (1)
  1. BYETTA [Suspect]
     Indication: DIABETES MELLITUS
     Dosage: 10 MCG; BID; SC
     Route: 058

REACTIONS (3)
  - INJECTION SITE IRRITATION [None]
  - INJECTION SITE PAIN [None]
  - MALAISE [None]
